FAERS Safety Report 21279670 (Version 6)
Quarter: 2022Q4

REPORT INFORMATION
  Report Type: Spontaneous
  Country: FR (occurrence: FR)
  Receive Date: 20220901
  Receipt Date: 20221222
  Transmission Date: 20230113
  Serious: Yes (Death, Other)
  Sender: FDA-Public Use
  Company Number: FR-drreddys-SPO/FRA/22/0153776

PATIENT
  Age: 60 Year
  Sex: Male

DRUGS (19)
  1. BORTEZOMIB [Suspect]
     Active Substance: BORTEZOMIB
     Indication: Plasma cell myeloma
     Dosage: FRONT-LINE THERAPY, TRIPLET BORTEZOMIB LENALIDOMIDE- DEXAMETHASONE (VRD), PENTA-REFRACTORY
  2. BORTEZOMIB [Suspect]
     Active Substance: BORTEZOMIB
     Indication: Plasma cell myeloma refractory
  3. CYCLOPHOSPHAMIDE [Suspect]
     Active Substance: CYCLOPHOSPHAMIDE
     Indication: Plasma cell myeloma
  4. LENALIDOMIDE [Suspect]
     Active Substance: LENALIDOMIDE
     Indication: Plasma cell myeloma
     Dosage: FRONT-LINE THERAPY, TRIPLET BORTEZOMIB LENALIDOMIDE- DEXAMETHASONE (VRD), PENTA-REFRACTORY
  5. LENALIDOMIDE [Suspect]
     Active Substance: LENALIDOMIDE
     Indication: Plasma cell myeloma refractory
  6. DARZALEX [Suspect]
     Active Substance: DARATUMUMAB
     Indication: Plasma cell myeloma
     Dosage: PENTA-REFRACTORY
  7. DARZALEX [Suspect]
     Active Substance: DARATUMUMAB
     Indication: Plasma cell myeloma refractory
  8. POMALIDOMIDE [Suspect]
     Active Substance: POMALIDOMIDE
     Indication: Plasma cell myeloma
     Dosage: TRIPLET COMBINATION CARFILZOMIB-POMALIDOMIDE DEXAMETHASONE (KPD), PENTA-REFRACTORY
  9. POMALIDOMIDE [Suspect]
     Active Substance: POMALIDOMIDE
     Indication: Plasma cell myeloma refractory
  10. CARFILZOMIB [Suspect]
     Active Substance: CARFILZOMIB
     Indication: Plasma cell myeloma
     Dosage: TRIPLET COMBINATION CARFILZOMIB-POMALIDOMIDE DEXAMETHASONE (KPD), PENTA-REFRACTORY
  11. CARFILZOMIB [Suspect]
     Active Substance: CARFILZOMIB
     Indication: Plasma cell myeloma refractory
  12. PANOBINOSTAT [Suspect]
     Active Substance: PANOBINOSTAT
     Indication: Plasma cell myeloma
  13. PANOBINOSTAT [Suspect]
     Active Substance: PANOBINOSTAT
     Indication: Plasma cell myeloma refractory
  14. DEXAMETHASONE [Suspect]
     Active Substance: DEXAMETHASONE
     Indication: Plasma cell myeloma
     Dosage: TRIPLET COMBINATION CARFILZOMIB-POMALIDOMIDE DEXAMETHASONE (KPD)
  15. DEXAMETHASONE [Suspect]
     Active Substance: DEXAMETHASONE
     Indication: Plasma cell myeloma refractory
     Dosage: FRONT-LINE THERAPY, TRIPLET BORTEZOMIB LENALIDOMIDE- DEXAMETHASONE (VRD)
  16. TRAMETINIB [Suspect]
     Active Substance: TRAMETINIB
     Indication: Plasma cell myeloma
     Dosage: MEK INHIBITOR
     Route: 048
  17. TRAMETINIB [Suspect]
     Active Substance: TRAMETINIB
     Indication: Plasma cell myeloma refractory
  18. DABRAFENIB [Suspect]
     Active Substance: DABRAFENIB
     Indication: Plasma cell myeloma
     Dosage: BRAF INHIBITOR
     Route: 048
  19. DABRAFENIB [Suspect]
     Active Substance: DABRAFENIB
     Indication: Plasma cell myeloma refractory

REACTIONS (2)
  - Plasma cell myeloma [Fatal]
  - Drug ineffective [Unknown]
